FAERS Safety Report 11126900 (Version 2)
Quarter: 2015Q2

REPORT INFORMATION
  Report Type: Spontaneous
  Country: US (occurrence: US)
  Receive Date: 20150520
  Receipt Date: 20150630
  Transmission Date: 20150821
  Serious: No
  Sender: FDA-Public Use
  Company Number: US-AMGEN-USASP2015048763

PATIENT
  Age: 54 Year
  Sex: Female
  Weight: 102 kg

DRUGS (2)
  1. ENBREL [Suspect]
     Active Substance: ETANERCEPT
     Indication: RHEUMATOID ARTHRITIS
  2. ENBREL [Suspect]
     Active Substance: ETANERCEPT
     Indication: POLYMYALGIA RHEUMATICA
     Dosage: 50 MG, QWK
     Route: 058
     Dates: start: 201404, end: 201504

REACTIONS (6)
  - Cough [Not Recovered/Not Resolved]
  - Tooth infection [Recovered/Resolved]
  - Nasopharyngitis [Not Recovered/Not Resolved]
  - Nasal congestion [Not Recovered/Not Resolved]
  - Off label use [Recovered/Resolved]
  - Dental caries [Recovering/Resolving]

NARRATIVE: CASE EVENT DATE: 20140509
